FAERS Safety Report 8465526-2 (Version None)
Quarter: 2012Q2

REPORT INFORMATION
  Report Type: 
  Country: None (occurrence: None)
  Receive Date: 20120626
  Receipt Date: 20120620
  Transmission Date: 20120825
  Serious: Yes (Hospitalization)
  Sender: FDA-Public Use
  Company Number: US-BAYER-2012-062561

PATIENT
  Age: 37 Year
  Sex: Female
  Weight: 72.562 kg

DRUGS (16)
  1. CEFAZOLIN [Concomitant]
     Dosage: 1 GRAM EVERY 6 HOURS FOR 3 DOSES
     Route: 042
     Dates: start: 20110119
  2. DROSPIRENONE AND ETHINYL ESTRADIOL [Suspect]
  3. MULTI-VITAMINS [Concomitant]
     Dosage: 1 DAILY
  4. ROBAXIN [Concomitant]
     Indication: MUSCLE SPASMS
     Dosage: 500 MG Q (INTERPRETED AS EVERY) 6-8 HOURS PRN (INTERPRETED AS +#8220;AS NEEDED+#8221;)
     Route: 048
  5. ROBAXIN [Concomitant]
     Dosage: 500 MG, UNK
     Route: 042
     Dates: start: 20110118
  6. YAZ [Suspect]
  7. YASMIN [Suspect]
  8. AMBIEN [Concomitant]
  9. OXYCODONE/TYLENOL 5/325 [Concomitant]
  10. OXYCODONE HCL [Concomitant]
     Indication: PAIN
     Dosage: 5/325 MG 1-2 TABLETS EVERY SIX HOURS
     Route: 048
     Dates: start: 20110120
  11. MORPHINE SULFATE [Concomitant]
     Indication: PAIN
     Dosage: VARIABLE
     Route: 042
     Dates: start: 20110118, end: 20110119
  12. ZOFRAN [Concomitant]
     Indication: NAUSEA
     Dosage: UNK
     Route: 042
     Dates: start: 20110118
  13. WARFARIN SODIUM [Concomitant]
  14. HYDROMORPHONE HCL [Concomitant]
     Indication: PAIN
     Dosage: 1 MG EVERY 3 HOURS AS NEEDED
     Route: 042
     Dates: start: 20110119, end: 20110120
  15. ATIVAN [Concomitant]
  16. CALCIUM [Concomitant]
     Dosage: 600 MG DAILY

REACTIONS (1)
  - PULMONARY EMBOLISM [None]
